FAERS Safety Report 8097197-1 (Version None)
Quarter: 2012Q1

REPORT INFORMATION
  Report Type: 
  Country: None (occurrence: None)
  Receive Date: 20120128
  Receipt Date: 20110715
  Transmission Date: 20120608
  Serious: No
  Sender: FDA-Public Use
  Company Number: US-ABBOTT-11P-163-0839366-00

PATIENT
  Age: 28 Year
  Sex: Female

DRUGS (4)
  1. CLOBEX [Concomitant]
     Indication: PRODUCT USED FOR UNKNOWN INDICATION
  2. HUMIRA [Suspect]
  3. HUMIRA [Suspect]
     Indication: PSORIASIS
  4. ZOLOFT [Concomitant]
     Indication: PRODUCT USED FOR UNKNOWN INDICATION

REACTIONS (3)
  - PSORIASIS [None]
  - BRONCHITIS [None]
  - PNEUMONIA [None]
